FAERS Safety Report 25970075 (Version 2)
Quarter: 2025Q4

REPORT INFORMATION
  Report Type: Spontaneous
  Country: US (occurrence: None)
  Receive Date: 20251028
  Receipt Date: 20251215
  Transmission Date: 20260118
  Serious: No
  Sender: UCB
  Company Number: US-UCBSA-2025040176

PATIENT
  Age: 20 Year

DRUGS (1)
  1. BIMZELX [Suspect]
     Active Substance: BIMEKIZUMAB-BKZX
     Indication: Hidradenitis
     Dosage: 320 MILLIGRAM, EV 2 WEEKS(QOW) FOR 16 WEEKS (WEEKS 4, 6, 8, 10, 12, 14, AND 16) THEN 1 PEN EVERY 4 WEEKS THEREAFTER

REACTIONS (6)
  - Hidradenitis [Not Recovered/Not Resolved]
  - Condition aggravated [Not Recovered/Not Resolved]
  - Mood altered [Unknown]
  - Oral herpes [Unknown]
  - Cough [Unknown]
  - Drug ineffective [Unknown]
